FAERS Safety Report 4437221-8 (Version None)
Quarter: 2004Q3

REPORT INFORMATION
  Report Type: 
  Country: None (occurrence: None)
  Receive Date: 20040726
  Receipt Date: 20040308
  Transmission Date: 20050211
  Serious: No
  Sender: FDA-Public Use
  Company Number: USA030229000

PATIENT
  Age: 90 Year
  Sex: Female
  Weight: 48 kg

DRUGS (4)
  1. FORTEO [Suspect]
     Indication: OSTEOPOROSIS
     Dosage: 20 UG/DAY
     Dates: start: 20030207
  2. CALCIUM [Concomitant]
  3. SYNTHROID [Concomitant]
  4. VITAMIN D [Concomitant]

REACTIONS (4)
  - ABDOMINAL DISCOMFORT [None]
  - HEAD DISCOMFORT [None]
  - HEADACHE [None]
  - RASH PAPULAR [None]
